FAERS Safety Report 7483868-4 (Version None)
Quarter: 2011Q2

REPORT INFORMATION
  Report Type: 
  Country: None (occurrence: None)
  Receive Date: 20110517
  Receipt Date: 20110429
  Transmission Date: 20111010
  Serious: No
  Sender: FDA-Public Use
  Company Number: US-B.I. PHARMACEUTICALS,INC./RIDGEFIELD-2011-BP-12402BP

PATIENT
  Sex: Female

DRUGS (3)
  1. CARDIZEM [Concomitant]
     Indication: HYPERTENSION
  2. CATAPRES-TTS-1 [Suspect]
     Indication: HYPERTENSION
     Dosage: 0.2 MG
     Route: 061
     Dates: start: 19930101
  3. XANAX [Concomitant]
     Indication: HYPERTENSION

REACTIONS (5)
  - TINNITUS [None]
  - BLOOD PRESSURE INCREASED [None]
  - NECK PAIN [None]
  - DIZZINESS [None]
  - HEADACHE [None]
